FAERS Safety Report 21098771 (Version 3)
Quarter: 2022Q3

REPORT INFORMATION
  Report Type: Other
  Country: US (occurrence: None)
  Receive Date: 20220719
  Receipt Date: 20220728
  Transmission Date: 20221026
  Serious: No
  Sender: FDA-Public Use
  Company Number: US-ROCHE-3139732

PATIENT
  Sex: Female

DRUGS (12)
  1. OCREVUS [Suspect]
     Active Substance: OCRELIZUMAB
     Indication: Relapsing-remitting multiple sclerosis
     Dosage: OCREVUS STARTED 2011, FIRST DIAGNOSED MULTIPLE SCLEROSIS: 2007, JCV POSITIVE: 2.61
     Route: 042
     Dates: end: 202206
  2. DOXYCYCLINE [Concomitant]
     Active Substance: DOXYCYCLINE
  3. OSELTAMIVIR [Concomitant]
     Active Substance: OSELTAMIVIR
  4. TECFIDERA [Concomitant]
     Active Substance: DIMETHYL FUMARATE
  5. BACLOFEN [Concomitant]
     Active Substance: BACLOFEN
  6. ASPIRIN [Concomitant]
     Active Substance: ASPIRIN
  7. BENAZEPRIL [Concomitant]
     Active Substance: BENAZEPRIL HYDROCHLORIDE
  8. DIPHENHYDRAMINE [Concomitant]
     Active Substance: DIPHENHYDRAMINE
  9. VITAMIN D NOS [Concomitant]
     Active Substance: VITAMIN D NOS
  10. INDOCIN [Concomitant]
     Active Substance: INDOMETHACIN
  11. LISINOPRIL [Concomitant]
     Active Substance: LISINOPRIL
  12. NALOXONE [Concomitant]
     Active Substance: NALOXONE

REACTIONS (1)
  - JC polyomavirus test positive [Unknown]
